FAERS Safety Report 4470701-8 (Version None)
Quarter: 2004Q4

REPORT INFORMATION
  Report Type: 
  Country: None (occurrence: None)
  Receive Date: 20041006
  Receipt Date: 20041001
  Transmission Date: 20050328
  Serious: Yes (Other)
  Sender: FDA-Public Use
  Company Number: 2004AC00346

PATIENT
  Age: 81 Year
  Sex: Female
  Weight: 54 kg

DRUGS (9)
  1. SEROQUEL [Suspect]
     Indication: DEPRESSION
     Dosage: 200 MG HS PO
     Route: 048
     Dates: start: 20040730, end: 20040901
  2. EFFEXOR [Concomitant]
  3. CORVATARD [Concomitant]
  4. FOSAMAX [Concomitant]
  5. PROLOPA [Concomitant]
  6. IMOVANE [Concomitant]
  7. DULCOLAX [Concomitant]
  8. AACIFEMINE [Concomitant]
  9. MOTILIUM [Concomitant]

REACTIONS (1)
  - LEUKOPENIA [None]
